FAERS Safety Report 18539492 (Version 1)
Quarter: 2020Q4

REPORT INFORMATION
  Report Type: Spontaneous
  Country: US (occurrence: US)
  Receive Date: 20201124
  Receipt Date: 20201124
  Transmission Date: 20210114
  Serious: No
  Sender: FDA-Public Use
  Company Number: US-THERAPEUTICSMD-2020TMD03523

PATIENT
  Sex: Female

DRUGS (2)
  1. ANNOVERA [Suspect]
     Active Substance: ETHINYL ESTRADIOL\SEGESTERONE ACETATE
     Dosage: 1 DOSAGE UNIT
     Route: 067
     Dates: start: 20200813
  2. ANNOVERA [Suspect]
     Active Substance: ETHINYL ESTRADIOL\SEGESTERONE ACETATE
     Dosage: 1 DOSAGE UNIT
     Route: 067
     Dates: start: 20200713, end: 20200802

REACTIONS (3)
  - Paranoia [Unknown]
  - Inappropriate schedule of product administration [Recovered/Resolved]
  - Vaginal discharge [Unknown]

NARRATIVE: CASE EVENT DATE: 2020
